FAERS Safety Report 6932682-4 (Version None)
Quarter: 2010Q3

REPORT INFORMATION
  Report Type: 
  Country: None (occurrence: None)
  Receive Date: 20100819
  Receipt Date: 20100811
  Transmission Date: 20110219
  Serious: Yes (Hospitalization)
  Sender: FDA-Public Use
  Company Number: US-US-EMD SERONO, INC.-233592K09USA

PATIENT
  Sex: Female
  Weight: 82 kg

DRUGS (7)
  1. REBIF [Suspect]
     Indication: MULTIPLE SCLEROSIS
     Route: 058
     Dates: start: 20090226, end: 20090301
  2. REBIF [Suspect]
     Route: 058
     Dates: start: 20090301, end: 20090101
  3. REBIF [Suspect]
     Route: 058
     Dates: start: 20090101
  4. BACLOFEN [Concomitant]
     Indication: MUSCLE SPASMS
     Route: 065
     Dates: start: 20080901
  5. PROVIGIL [Concomitant]
  6. METOPROLOL [Concomitant]
     Indication: HYPERTENSION
  7. SERTRALINE HYDROCHLORIDE [Concomitant]

REACTIONS (6)
  - ABASIA [None]
  - ASTHENIA [None]
  - MULTIPLE SCLEROSIS RELAPSE [None]
  - SEPSIS [None]
  - STAPHYLOCOCCAL INFECTION [None]
  - URINARY TRACT INFECTION [None]
